FAERS Safety Report 19949749 (Version 1)
Quarter: 2021Q4

REPORT INFORMATION
  Report Type: Spontaneous
  Country: US (occurrence: US)
  Receive Date: 20211013
  Receipt Date: 20211013
  Transmission Date: 20220303
  Serious: No
  Sender: FDA-Public Use
  Company Number: US-AMGEN-USASP2021155769

PATIENT
  Sex: Male

DRUGS (1)
  1. MVASI [Suspect]
     Active Substance: BEVACIZUMAB-AWWB
     Indication: Rectal cancer
     Dosage: 480 MILLIGRAM
     Route: 065

REACTIONS (1)
  - Protein urine present [Unknown]

NARRATIVE: CASE EVENT DATE: 20211004
